FAERS Safety Report 7068526-2 (Version None)
Quarter: 2010Q4

REPORT INFORMATION
  Report Type: 
  Country: None (occurrence: None)
  Receive Date: 20101028
  Receipt Date: 20101019
  Transmission Date: 20110411
  Serious: Yes (Other)
  Sender: FDA-Public Use
  Company Number: GB-JNJCH-2010024050

PATIENT
  Sex: Female

DRUGS (1)
  1. CALPOL SIX PLUS [Suspect]
     Indication: PRODUCT USED FOR UNKNOWN INDICATION
     Dosage: TEXT:UNKNOWN
     Route: 048

REACTIONS (3)
  - GLOSSODYNIA [None]
  - TONGUE BLISTERING [None]
  - TONGUE DISORDER [None]
